FAERS Safety Report 24761590 (Version 1)
Quarter: 2024Q4

REPORT INFORMATION
  Report Type: Spontaneous
  Country: BR (occurrence: BR)
  Receive Date: 20241220
  Receipt Date: 20241220
  Transmission Date: 20250114
  Serious: Yes (Other)
  Sender: PFIZER
  Company Number: BR-PFIZER INC-202400326996

PATIENT
  Age: 65 Year
  Sex: Male
  Weight: 69.9 kg

DRUGS (7)
  1. RUXIENCE [Suspect]
     Active Substance: RITUXIMAB-PVVR
     Indication: Follicular lymphoma
     Dosage: 2ND INFUSION
     Route: 042
     Dates: start: 20241209, end: 20241209
  2. RUXIENCE [Suspect]
     Active Substance: RITUXIMAB-PVVR
     Dosage: 700 MG
     Route: 042
     Dates: start: 20241209, end: 20241209
  3. DIPHENHYDRAMINE [Concomitant]
     Active Substance: DIPHENHYDRAMINE
     Indication: Chemotherapy side effect prophylaxis
     Dosage: 50MG, TIME OF USE: 20 MINUTES
     Route: 042
     Dates: start: 20241209, end: 20241209
  4. ONDANSETRON [Concomitant]
     Active Substance: ONDANSETRON
     Indication: Chemotherapy side effect prophylaxis
     Dosage: 8 MG, CYCLIC, TIME OF USE: 10 MINUTES
     Dates: start: 20241209, end: 20241209
  5. ACETAMINOPHEN [Concomitant]
     Active Substance: ACETAMINOPHEN
     Indication: Chemotherapy side effect prophylaxis
     Dosage: 750 MG, CYCLIC
     Route: 048
     Dates: start: 20241209, end: 20241209
  6. FLUDARABINE [Concomitant]
     Active Substance: FLUDARABINE PHOSPHATE
     Indication: Follicular lymphoma
     Dosage: 44 MG, CYCLIC, TIME OF USE: 30 MINUTES
     Route: 042
     Dates: start: 20241209, end: 20241209
  7. CYCLOPHOSPHAMIDE [Concomitant]
     Active Substance: CYCLOPHOSPHAMIDE
     Indication: Follicular lymphoma
     Dosage: 264 MG, CYCLIC, TIME OF USE: 60 MINUTES
     Route: 042
     Dates: start: 20241209, end: 20241209

REACTIONS (2)
  - Abdominal pain [Recovered/Resolved]
  - Tremor [Recovered/Resolved]

NARRATIVE: CASE EVENT DATE: 20241209
